FAERS Safety Report 22041603 (Version 1)
Quarter: 2023Q1

REPORT INFORMATION
  Report Type: Report from Study
  Country: US (occurrence: None)
  Receive Date: 20230227
  Receipt Date: 20230227
  Transmission Date: 20230418
  Serious: Yes (Other)
  Sender: FDA-Public Use
  Company Number: 2023A041264

PATIENT
  Age: 11 Year
  Sex: Male

DRUGS (1)
  1. SELUMETINIB [Suspect]
     Active Substance: SELUMETINIB
     Indication: Neurofibromatosis
     Dosage: 25 MG/M2 OF BODY SURFACE AREA (BSA), TAKEN ORALLY TWICE DAILY (APPROXIMATELY EVERY 12 HOURS).
     Route: 048

REACTIONS (6)
  - Fatigue [Unknown]
  - Muscle fatigue [Unknown]
  - Nausea [Unknown]
  - Perioral dermatitis [Unknown]
  - Nail infection [Unknown]
  - Stomatitis [Unknown]
